FAERS Safety Report 5565100-1 (Version None)
Quarter: 2007Q4

REPORT INFORMATION
  Report Type: 
  Country: None (occurrence: None)
  Receive Date: 20071218
  Receipt Date: 20071218
  Transmission Date: 20080405
  Serious: Yes (Hospitalization)
  Sender: FDA-Public Use
  Company Number: PHHO2006DK18494

PATIENT
  Age: 80 Year
  Sex: Male
  Weight: 89.2 kg

DRUGS (4)
  1. ZOLEDRONIC ACID [Suspect]
     Indication: OSTEOPOROTIC FRACTURE
     Dosage: 5MG, ONCE YEARLY
  2. ZOLEDRONIC ACID [Suspect]
     Dosage: DOUBLE BLINDED
     Route: 042
     Dates: start: 20060210
  3. CALCIUM CARBONATE [Concomitant]
     Indication: OSTEOPOROTIC FRACTURE
  4. VITAMIN D [Concomitant]
     Indication: OSTEOPOROTIC FRACTURE

REACTIONS (4)
  - ARTERIOSCLEROSIS [None]
  - CEREBROVASCULAR ACCIDENT [None]
  - CONCOMITANT DISEASE PROGRESSION [None]
  - NEURALGIA [None]
